FAERS Safety Report 24622105 (Version 1)
Quarter: 2024Q4

REPORT INFORMATION
  Report Type: Spontaneous
  Country: CN (occurrence: CN)
  Receive Date: 20241114
  Receipt Date: 20241114
  Transmission Date: 20250115
  Serious: Yes (Other)
  Sender: AMGEN
  Company Number: CN-KYOWAKIRIN-2024KK025216

PATIENT
  Age: 55 Year
  Sex: Male

DRUGS (7)
  1. DARBEPOETIN ALFA [Suspect]
     Active Substance: DARBEPOETIN ALFA
     Indication: Neoplasm
     Dosage: 300 MICROGRAM, QD
     Route: 042
     Dates: start: 20241022
  2. BEVACIZUMAB [Concomitant]
     Active Substance: BEVACIZUMAB
     Indication: Neoplasm
     Dosage: 300 MILLIGRAM ( IV D1 14D)
     Route: 042
     Dates: start: 20241022
  3. IRINOTECAN HYDROCHLORIDE [Suspect]
     Active Substance: IRINOTECAN HYDROCHLORIDE
     Indication: Neoplasm
     Dosage: 240 MILLIGRAM, QD
     Route: 042
     Dates: start: 20241022
  4. TIPIRACIL HYDROCHLORIDE\TRIFLURIDINE [Concomitant]
     Active Substance: TIPIRACIL HYDROCHLORIDE\TRIFLURIDINE
     Indication: Neoplasm
     Dosage: UNK
     Route: 065
     Dates: start: 20241022
  5. RALTITREXED [Concomitant]
     Active Substance: RALTITREXED
     Indication: Neoplasm
     Dosage: UNK
     Route: 065
  6. TRIFLURIDINE [Concomitant]
     Active Substance: TRIFLURIDINE
     Indication: Neoplasm
     Dosage: UNK
     Route: 065
  7. TIPIRACIL HYDROCHLORIDE [Concomitant]
     Active Substance: TIPIRACIL HYDROCHLORIDE
     Indication: Neoplasm
     Dosage: 45 MG PO BID D1-5
     Route: 048

REACTIONS (1)
  - Myelosuppression [Recovering/Resolving]

NARRATIVE: CASE EVENT DATE: 20241104
